FAERS Safety Report 19929990 (Version 5)
Quarter: 2022Q1

REPORT INFORMATION
  Report Type: Report from Study
  Country: US (occurrence: None)
  Receive Date: 20211007
  Receipt Date: 20220309
  Transmission Date: 20220424
  Serious: Yes (Life-Threatening, Hospitalization, Other)
  Sender: FDA-Public Use
  Company Number: US-MERCK HEALTHCARE KGAA-9270478

PATIENT
  Age: 68 Year
  Sex: Female

DRUGS (3)
  1. REBIF [Suspect]
     Active Substance: INTERFERON BETA-1A
     Indication: Multiple sclerosis
     Dates: start: 2004
  2. REBIF [Suspect]
     Active Substance: INTERFERON BETA-1A
     Dosage: REBIF PREFILLED SYRINGE
     Route: 058
     Dates: start: 20051114, end: 20220225
  3. TYLENOL [Concomitant]
     Active Substance: ACETAMINOPHEN
     Indication: Premedication

REACTIONS (19)
  - Gastrointestinal haemorrhage [Recovered/Resolved]
  - Urinary bladder haemorrhage [Recovering/Resolving]
  - Coma [Recovered/Resolved]
  - Urosepsis [Recovered/Resolved]
  - Nephrolithiasis [Recovering/Resolving]
  - Urinary tract infection [Recovering/Resolving]
  - Diverticulitis [Unknown]
  - Fatigue [Not Recovered/Not Resolved]
  - Wound haemorrhage [Recovered/Resolved]
  - Decubitus ulcer [Recovered/Resolved]
  - Cholelithiasis [Unknown]
  - Glassy eyes [Recovering/Resolving]
  - Memory impairment [Recovering/Resolving]
  - Amnesia [Recovering/Resolving]
  - Multiple sclerosis [Recovering/Resolving]
  - Mobility decreased [Unknown]
  - Product administration interrupted [Recovered/Resolved]
  - Product dose omission issue [Unknown]
  - Drug ineffective [Unknown]

NARRATIVE: CASE EVENT DATE: 20210101
